FAERS Safety Report 13086392 (Version 2)
Quarter: 2017Q1

REPORT INFORMATION
  Report Type: Spontaneous
  Country: US (occurrence: US)
  Receive Date: 20170104
  Receipt Date: 20170110
  Transmission Date: 20170428
  Serious: Yes (Hospitalization)
  Sender: FDA-Public Use
  Company Number: US-RELYPSA-RLY2016004638

PATIENT
  Age: 72 Year
  Sex: Male

DRUGS (11)
  1. LEVOTHYROXINE. [Concomitant]
     Active Substance: LEVOTHYROXINE
  2. ISOSORBIDE MONONITRATE. [Concomitant]
     Active Substance: ISOSORBIDE MONONITRATE
  3. BABY ASPIRIN [Concomitant]
     Active Substance: ASPIRIN
  4. HYDRALAZINE [Concomitant]
     Active Substance: HYDRALAZINE HYDROCHLORIDE
  5. VELTASSA [Suspect]
     Active Substance: PATIROMER
     Indication: PRODUCT USED FOR UNKNOWN INDICATION
     Dosage: 8.4 G, QD
     Route: 048
     Dates: start: 201611, end: 20161217
  6. CLOPIDOGREL [Concomitant]
     Active Substance: CLOPIDOGREL BISULFATE
  7. VELTASSA [Suspect]
     Active Substance: PATIROMER
     Dosage: 8.4 G, T, TH, SUN
     Route: 048
     Dates: start: 20161218
  8. RENVELA [Concomitant]
     Active Substance: SEVELAMER CARBONATE
  9. CARVEDILOL. [Concomitant]
     Active Substance: CARVEDILOL
  10. ATORVASTATIN [Concomitant]
     Active Substance: ATORVASTATIN
  11. VENOFER [Concomitant]
     Active Substance: IRON SUCROSE
     Dosage: UNK, PRN AT DIALYSIS

REACTIONS (3)
  - Gastrointestinal infection [Recovered/Resolved]
  - Blood potassium increased [Unknown]
  - Urinary tract infection [Recovered/Resolved]

NARRATIVE: CASE EVENT DATE: 201612
